FAERS Safety Report 17159965 (Version 2)
Quarter: 2020Q1

REPORT INFORMATION
  Report Type: Spontaneous
  Country: US (occurrence: US)
  Receive Date: 20191216
  Receipt Date: 20200327
  Transmission Date: 20200409
  Serious: Yes (Other)
  Sender: FDA-Public Use
  Company Number: US-SA-2019SA344843

PATIENT
  Age: 72 Year
  Sex: Female
  Weight: 58.5 kg

DRUGS (5)
  1. DOXORUBICIN [Concomitant]
     Active Substance: DOXORUBICIN
     Indication: BREAST CANCER
  2. TAXOTERE [Suspect]
     Active Substance: DOCETAXEL
     Indication: BREAST CANCER
     Dosage: UNK UNK, QOW
     Route: 042
     Dates: start: 200901, end: 200901
  3. TAXOTERE [Suspect]
     Active Substance: DOCETAXEL
     Dosage: UNK UNK, QOW
     Route: 042
     Dates: start: 200905, end: 200905
  4. CYTOXAN [Concomitant]
     Active Substance: CYCLOPHOSPHAMIDE
     Indication: BREAST CANCER
     Dosage: UNK
  5. NEOSAR [Concomitant]
     Active Substance: CYCLOPHOSPHAMIDE
     Indication: BREAST CANCER
     Dosage: UNK

REACTIONS (6)
  - Pain [Unknown]
  - Psychological trauma [Unknown]
  - Alopecia [Recovering/Resolving]
  - Anxiety [Unknown]
  - Impaired quality of life [Unknown]
  - Emotional distress [Unknown]

NARRATIVE: CASE EVENT DATE: 2008
